FAERS Safety Report 4861487-3 (Version None)
Quarter: 2005Q4

REPORT INFORMATION
  Report Type: 
  Country: None (occurrence: None)
  Receive Date: 20051129
  Receipt Date: 20050306
  Transmission Date: 20060501
  Serious: Yes (Disabling)
  Sender: FDA-Public Use
  Company Number: WAES 0504USA00806

PATIENT
  Age: 65 Year
  Sex: Female

DRUGS (2)
  1. FOSAMAX [Suspect]
     Indication: OSTEOPOROSIS
     Dosage: 70 MG/WKY/PO
     Route: 048
     Dates: start: 19990101, end: 20041215
  2. LEVOXYL [Concomitant]

REACTIONS (5)
  - ARTHRALGIA [None]
  - BONE DENSITY DECREASED [None]
  - FATIGUE [None]
  - NAUSEA [None]
  - THERAPEUTIC RESPONSE DECREASED [None]
